FAERS Safety Report 9219103 (Version 1)
Quarter: 2013Q2

REPORT INFORMATION
  Report Type: Spontaneous
  Country: US (occurrence: None)
  Receive Date: 20130405
  Receipt Date: 20130405
  Transmission Date: 20140414
  Serious: Yes (Hospitalization)
  Sender: FDA-Public Use
  Company Number: None

PATIENT
  Age: 61 Year
  Sex: Male
  Weight: 82.7 kg

DRUGS (1)
  1. SULFAMETHOXAZOLE/TRIMETHOPRIM [Suspect]
     Indication: CELLULITIS
     Dosage: 1 TAB BID PO
     Route: 048
     Dates: start: 20130204, end: 20130212

REACTIONS (6)
  - Deep vein thrombosis [None]
  - Asthenia [None]
  - Hyperhidrosis [None]
  - Renal failure acute [None]
  - Hyperkalaemia [None]
  - Dehydration [None]
